FAERS Safety Report 4378351-9 (Version None)
Quarter: 2004Q2

REPORT INFORMATION
  Report Type: 
  Country: None (occurrence: None)
  Receive Date: 20040609
  Receipt Date: 20040527
  Transmission Date: 20050107
  Serious: Yes (Hospitalization)
  Sender: FDA-Public Use
  Company Number: US-SHR-04-021214

PATIENT
  Age: 50 Year
  Sex: Female
  Weight: 63.5 kg

DRUGS (12)
  1. BETASERON [Suspect]
     Indication: MULTIPLE SCLEROSIS
     Dosage: 8 MIU, EVERY 2D; SUBCUTANEOUS
     Route: 058
     Dates: start: 20030827
  2. CORTICOSTEROIDS ( [Concomitant]
     Dosage: UNK, UNK, UNK
     Route: 065
  3. TRILEPTAL [Concomitant]
  4. MIRAPEX [Concomitant]
  5. ESTRADIOL [Concomitant]
  6. NEXIUM [Concomitant]
  7. ADVAIR (SALMETEROL XINAFOATE, FLUTICASONE PROPIONATE) [Concomitant]
  8. SINGULAIR [Concomitant]
  9. ZYRTEC [Concomitant]
  10. OXYBUTYNIN [Concomitant]
  11. OTHER RESPIRATORY SYSTEM PRODUCTS [Concomitant]
  12. NASONEX [Concomitant]

REACTIONS (11)
  - CHOLECYSTITIS CHRONIC [None]
  - CHOLELITHIASIS [None]
  - CONDITION AGGRAVATED [None]
  - DIAPHRAGMATIC DISORDER [None]
  - GALLBLADDER CHOLESTEROLOSIS [None]
  - MULTIPLE SCLEROSIS [None]
  - MUSCLE CRAMP [None]
  - OVARIAN CYST [None]
  - PERITONEAL HAEMORRHAGE [None]
  - POST PROCEDURAL PAIN [None]
  - TRIGEMINAL NEURALGIA [None]
